FAERS Safety Report 8416898 (Version 5)
Quarter: 2014Q2

REPORT INFORMATION
  Report Type: Spontaneous
  Country: DE (occurrence: DE)
  Receive Date: 20120220
  Receipt Date: 20140530
  Transmission Date: 20141212
  Serious: Yes (Death, Other)
  Sender: FDA-Public Use
  Company Number: DE-PFIZER INC-2012043372

PATIENT
  Age: 81 Year
  Sex: Male

DRUGS (5)
  1. MORPHINE SULFATE [Suspect]
     Indication: RESTLESSNESS
     Dosage: 2.5 MG, SINGLE
     Route: 058
     Dates: start: 20090819, end: 20090819
  2. NEUROCIL [Interacting]
     Indication: RESTLESSNESS
     Dosage: 0.5 MG, TWICE
     Route: 058
     Dates: start: 20090819, end: 20090819
  3. MIDAZOLAM [Interacting]
     Indication: RESTLESSNESS
     Dosage: 5 MG, SINGLE
     Route: 058
     Dates: start: 20090819, end: 20090819
  4. MORPHINE [Interacting]
     Indication: DYSPNOEA
     Dosage: UNK, PM
     Route: 048
     Dates: start: 20090818, end: 20090818
  5. HALDOL [Interacting]
     Indication: HALLUCINATION
     Dosage: 5 DF, UNK
     Dates: start: 20090818, end: 20090818

REACTIONS (7)
  - Cardiac arrest [Fatal]
  - Encephalopathy [Fatal]
  - Overdose [Unknown]
  - Drug interaction [Unknown]
  - Stupor [Unknown]
  - Sedation [Unknown]
  - Coma [Unknown]
